FAERS Safety Report 6931852-9 (Version None)
Quarter: 2010Q3

REPORT INFORMATION
  Report Type: 
  Country: None (occurrence: None)
  Receive Date: 20100819
  Receipt Date: 20100810
  Transmission Date: 20110219
  Serious: Yes (Hospitalization)
  Sender: FDA-Public Use
  Company Number: JP-PFIZER INC-2010097065

PATIENT
  Age: 28 Year
  Sex: Female

DRUGS (5)
  1. ZITHROMAC SR [Suspect]
     Indication: PNEUMONIA MYCOPLASMAL
     Dosage: 2 G, SINGLE
     Route: 048
     Dates: start: 20100523, end: 20100523
  2. DALACIN [Suspect]
     Indication: PNEUMONIA MYCOPLASMAL
     Dosage: 20 MG, 3X/DAY
     Route: 048
     Dates: start: 20100523
  3. LOXONIN [Concomitant]
     Dosage: 20 MG, 3X/DAY
     Route: 048
     Dates: start: 20100513
  4. GARENOXACIN MESILATE [Concomitant]
     Dosage: 400 MG/DAY
     Route: 048
     Dates: start: 20100520
  5. SELBEX [Concomitant]
     Dosage: 50 MG, 3X/DAY
     Route: 048
     Dates: start: 20100513

REACTIONS (1)
  - DRUG ERUPTION [None]
